FAERS Safety Report 10634014 (Version 1)
Quarter: 2014Q4

REPORT INFORMATION
  Report Type: Spontaneous
  Country: CH (occurrence: None)
  Receive Date: 20141203
  Receipt Date: 20141203
  Transmission Date: 20150529
  Serious: Yes (Hospitalization)
  Sender: FDA-Public Use
  Company Number: 20140766

PATIENT
  Age: 24 Year
  Sex: Female

DRUGS (1)
  1. FERINJECT [Suspect]
     Active Substance: FERRIC CARBOXYMALTOSE
     Indication: PRODUCT USED FOR UNKNOWN INDICATION
     Route: 041
     Dates: start: 20141009

REACTIONS (6)
  - Chest discomfort [None]
  - Erythema [None]
  - Heart rate increased [None]
  - Arrhythmia [None]
  - Blood pressure increased [None]
  - Hot flush [None]

NARRATIVE: CASE EVENT DATE: 20141009
